FAERS Safety Report 5624195-7 (Version None)
Quarter: 2008Q1

REPORT INFORMATION
  Report Type: 
  Country: None (occurrence: None)
  Receive Date: 20080213
  Receipt Date: 20080205
  Transmission Date: 20080703
  Serious: Yes (Hospitalization, Other)
  Sender: FDA-Public Use
  Company Number: PHHY2008JP01143

PATIENT
  Sex: Female
  Weight: 56 kg

DRUGS (1)
  1. VOLTAREN [Suspect]
     Indication: BACK PAIN
     Dosage: 100 MG/DAY
     Route: 054
     Dates: start: 20070801, end: 20070801

REACTIONS (10)
  - BLOOD CREATINE PHOSPHOKINASE INCREASED [None]
  - BLOOD PRESSURE DECREASED [None]
  - BODY TEMPERATURE DECREASED [None]
  - DIARRHOEA [None]
  - FLUID REPLACEMENT [None]
  - GASTROENTERITIS SHIGELLA [None]
  - HEART RATE INCREASED [None]
  - NAUSEA [None]
  - SHOCK [None]
  - WHITE BLOOD CELL COUNT INCREASED [None]
